FAERS Safety Report 9164583 (Version 2)
Quarter: 2013Q1

REPORT INFORMATION
  Report Type: Spontaneous
  Country: CA (occurrence: None)
  Receive Date: 20130201
  Receipt Date: 20130320
  Transmission Date: 20140127
  Serious: Yes (Hospitalization)
  Sender: FDA-Public Use
  Company Number: CA-010764

PATIENT
  Age: 62 Year
  Sex: Female
  Weight: 61.24 kg

DRUGS (4)
  1. DULCOLAX [Suspect]
     Indication: COLONOSCOPY
     Dosage: 4 TABLETS X ONE DOSE
     Route: 048
     Dates: start: 20120916, end: 20120916
  2. SODIUM PICOSULFATE [Suspect]
     Indication: COLONOSCOPY
     Route: 048
     Dates: start: 20120916, end: 20120916
  3. ACTENOL [Concomitant]
  4. VITAMIN D3 [Concomitant]

REACTIONS (6)
  - Abdominal pain [None]
  - Dizziness [None]
  - Loss of consciousness [None]
  - Pollakiuria [None]
  - Syncope [None]
  - Vomiting [None]
